FAERS Safety Report 7457429-7 (Version None)
Quarter: 2011Q2

REPORT INFORMATION
  Report Type: 
  Country: None (occurrence: None)
  Receive Date: 20110504
  Receipt Date: 20110421
  Transmission Date: 20111010
  Serious: Yes (Other)
  Sender: FDA-Public Use
  Company Number: PHHY2011US36372

PATIENT

DRUGS (1)
  1. PROLEUKIN [Suspect]
     Dosage: ONE CYCLE (TOTAL OF EIGHT DOSES)

REACTIONS (2)
  - VISION BLURRED [None]
  - RETINAL HAEMORRHAGE [None]
